FAERS Safety Report 10385969 (Version 1)
Quarter: 2014Q1

REPORT INFORMATION
  Report Type: Spontaneous
  Country: US (occurrence: None)
  Receive Date: 20140306
  Receipt Date: 20140306
  Transmission Date: 20141002
  Serious: Yes (Other)
  Sender: FDA-Public Use
  Company Number: 163-21880-13054629

PATIENT
  Age: 65 Year
  Sex: Female

DRUGS (5)
  1. REVLIMID (LENALIDOMIDE) (10 MILLIGRAM, CAPSULES) [Suspect]
     Indication: MYELODYSPLASTIC SYNDROME
     Dosage: 10 MG, 28 IN 28 D, PO
     Route: 048
     Dates: start: 20130503
  2. LOVASTATIN [Concomitant]
  3. FLUOXETINE HCL (FLUOXETINE HYDROCHLORIDE) [Concomitant]
  4. NEXIUM DR (ESOMEPRAZOLE) [Concomitant]
  5. LEVOTHYROXINE [Concomitant]

REACTIONS (2)
  - Chest wall abscess [None]
  - Joint swelling [None]
